FAERS Safety Report 8416290-4 (Version None)
Quarter: 2012Q2

REPORT INFORMATION
  Report Type: 
  Country: None (occurrence: None)
  Receive Date: 20120606
  Receipt Date: 20120530
  Transmission Date: 20120825
  Serious: Yes (Other)
  Sender: FDA-Public Use
  Company Number: MX-ROCHE-1074969

PATIENT
  Sex: Female
  Weight: 64 kg

DRUGS (6)
  1. HERCEPTIN [Suspect]
     Indication: BREAST CANCER
     Route: 042
     Dates: start: 20100901, end: 20110901
  2. NAVELBINE [Concomitant]
     Indication: BREAST CANCER
     Route: 042
  3. DOCETAXEL [Concomitant]
     Indication: BREAST CANCER
     Route: 042
  4. HERCEPTIN [Suspect]
     Route: 042
     Dates: start: 20120522
  5. XELODA [Suspect]
     Indication: BREAST CANCER
     Route: 048
     Dates: start: 20120522
  6. ZOMETA [Concomitant]
     Indication: BREAST CANCER
     Route: 042

REACTIONS (2)
  - LUNG CANCER METASTATIC [None]
  - DRUG INEFFECTIVE [None]
